FAERS Safety Report 9334995 (Version 1)
Quarter: 2013Q2

REPORT INFORMATION
  Report Type: Spontaneous
  Country: US (occurrence: US)
  Receive Date: 20130606
  Receipt Date: 20130606
  Transmission Date: 20140414
  Serious: No
  Sender: FDA-Public Use
  Company Number: US-ASTRAZENECA-2013SE35917

PATIENT
  Sex: Male

DRUGS (3)
  1. CRESTOR [Suspect]
     Route: 048
  2. TESTOSTERONE INJECTION [Concomitant]
  3. TOPICAL TREATMENT [Concomitant]

REACTIONS (1)
  - Blood testosterone decreased [Unknown]
